FAERS Safety Report 20623766 (Version 1)
Quarter: 2022Q1

REPORT INFORMATION
  Report Type: Spontaneous
  Country: US (occurrence: US)
  Receive Date: 20220322
  Receipt Date: 20220322
  Transmission Date: 20220423
  Serious: No
  Sender: FDA-Public Use
  Company Number: US-009507513-2203USA005074

PATIENT
  Sex: Female

DRUGS (1)
  1. PROVENTIL [Suspect]
     Active Substance: ALBUTEROL
     Route: 055

REACTIONS (3)
  - Illness [Not Recovered/Not Resolved]
  - Product delivery mechanism issue [Unknown]
  - Poor quality device used [Unknown]

NARRATIVE: CASE EVENT DATE: 20220101
